FAERS Safety Report 6289594-1 (Version None)
Quarter: 2009Q3

REPORT INFORMATION
  Report Type: 
  Country: None (occurrence: None)
  Receive Date: 20090730
  Receipt Date: 20090723
  Transmission Date: 20100115
  Serious: Yes (Hospitalization, Other)
  Sender: FDA-Public Use
  Company Number: JP-BAYER-200911622BYL

PATIENT
  Age: 9 Month
  Sex: Male
  Weight: 6.9 kg

DRUGS (18)
  1. FLUDARA [Suspect]
     Indication: MYELODYSPLASTIC SYNDROME
     Route: 042
     Dates: start: 20081218, end: 20081223
  2. THYMOGLOBULIN [Suspect]
     Indication: ALLOGENIC BONE MARROW TRANSPLANTATION THERAPY
     Route: 042
     Dates: start: 20081222, end: 20081222
  3. MELPHALAN [Concomitant]
     Indication: MYELODYSPLASTIC SYNDROME
     Route: 042
     Dates: start: 20081219, end: 20081220
  4. FRAGMIN [Concomitant]
     Route: 042
     Dates: start: 20081218, end: 20090119
  5. VICCLOX [Concomitant]
     Route: 042
     Dates: start: 20081221, end: 20090116
  6. PANSPORIN [Concomitant]
     Indication: INFECTION
     Dosage: TOTAL DAILY DOSE: 750 MG
     Route: 042
     Dates: start: 20081221, end: 20090107
  7. PROGRAF [Concomitant]
     Indication: PROPHYLAXIS AGAINST GRAFT VERSUS HOST DISEASE
     Route: 042
     Dates: start: 20081224
  8. ATARAX [Concomitant]
     Route: 042
     Dates: start: 20081225, end: 20081225
  9. SOLU-CORTEF [Concomitant]
     Route: 042
     Dates: start: 20081225, end: 20081225
  10. MODACIN [Concomitant]
     Indication: INFECTION PROPHYLAXIS
     Dosage: TOTAL DAILY DOSE: 1500 MG
     Route: 042
     Dates: start: 20090109
  11. AMIKACIN SULFATE [Concomitant]
     Indication: INFECTION PROPHYLAXIS
     Dosage: TOTAL DAILY DOSE: 300 MG
     Route: 042
     Dates: start: 20090109
  12. VENOGLOBULIN [Concomitant]
     Dosage: TOTAL DAILY DOSE: 1500 MG
     Route: 042
     Dates: start: 20090114
  13. BAKTAR [Concomitant]
     Route: 065
     Dates: start: 20090121
  14. LEUKERIN [Concomitant]
     Indication: MYELODYSPLASTIC SYNDROME
     Route: 042
     Dates: start: 20090319
  15. LASTET [Concomitant]
     Indication: MYELODYSPLASTIC SYNDROME
     Route: 042
     Dates: start: 20090313
  16. CYLOCIDE [Concomitant]
     Indication: MYELODYSPLASTIC SYNDROME
     Route: 042
     Dates: start: 20090313
  17. CONCENTRATED RED CELLS [Concomitant]
     Indication: PACKED RED BLOOD CELL TRANSFUSION
     Route: 042
     Dates: start: 20081221, end: 20090110
  18. PLATELETS [Concomitant]
     Indication: PLATELET TRANSFUSION
     Route: 042
     Dates: start: 20081218, end: 20090110

REACTIONS (2)
  - ACUTE GRAFT VERSUS HOST DISEASE [None]
  - EPSTEIN-BARR VIRUS ASSOCIATED LYMPHOPROLIFERATIVE DISORDER [None]
